FAERS Safety Report 9252465 (Version 1)
Quarter: 2013Q2

REPORT INFORMATION
  Report Type: Spontaneous
  Country: US (occurrence: US)
  Receive Date: 20130424
  Receipt Date: 20130424
  Transmission Date: 20140414
  Serious: Yes (Other)
  Sender: FDA-Public Use
  Company Number: US-ASTRAZENECA-2013SE25538

PATIENT
  Age: 56 Year
  Sex: Male
  Weight: 77.1 kg

DRUGS (7)
  1. NEXIUM [Suspect]
     Route: 048
  2. SINGULAIR [Concomitant]
     Indication: ASTHMA
  3. PROAIR [Concomitant]
     Indication: ASTHMA
  4. ADVAIR [Concomitant]
     Indication: ASTHMA
  5. THEOPHYLLINE [Concomitant]
     Indication: ASTHMA
  6. ALBUTEROL [Concomitant]
     Indication: ASTHMA
  7. NEBULIZER [Concomitant]
     Indication: ASTHMA

REACTIONS (5)
  - Throat cancer [Unknown]
  - Thrombosis [Unknown]
  - Dysphagia [Unknown]
  - Vomiting [Unknown]
  - Off label use [Unknown]
